FAERS Safety Report 9520338 (Version 1)
Quarter: 2013Q3

REPORT INFORMATION
  Report Type: Report from Study
  Country: US (occurrence: US)
  Receive Date: 20130912
  Receipt Date: 20130912
  Transmission Date: 20140515
  Serious: Yes (Other)
  Sender: FDA-Public Use
  Company Number: US-ABBOTT-13P-163-1144120-00

PATIENT
  Age: 60 Year
  Sex: Male

DRUGS (10)
  1. HUMIRA [Suspect]
     Indication: PSORIASIS
     Dates: start: 2009
  2. HUMIRA [Suspect]
     Dates: start: 201211, end: 201302
  3. HUMIRA [Suspect]
     Dates: start: 20130902
  4. ALLOPURINOL [Concomitant]
     Indication: GOUT
  5. ATENOLOL [Concomitant]
     Indication: HYPERTENSION
  6. BENAZEPRIL [Concomitant]
     Indication: HYPERTENSION
  7. ABILIFY [Concomitant]
     Indication: BIPOLAR DISORDER
  8. FUROSEMIDE [Concomitant]
     Indication: CARDIAC FAILURE CONGESTIVE
  9. METFORMIN [Concomitant]
     Indication: DIABETES MELLITUS
  10. LOVASTATIN [Concomitant]
     Indication: BLOOD CHOLESTEROL INCREASED

REACTIONS (5)
  - Benign prostatic hyperplasia [Not Recovered/Not Resolved]
  - Cataract [Unknown]
  - Psoriasis [Unknown]
  - Nasopharyngitis [Recovering/Resolving]
  - Oropharyngeal pain [Recovering/Resolving]
